FAERS Safety Report 9668945 (Version 1)
Quarter: 2013Q4

REPORT INFORMATION
  Report Type: Spontaneous
  Country: IT (occurrence: IT)
  Receive Date: 20131105
  Receipt Date: 20131105
  Transmission Date: 20140711
  Serious: Yes (Hospitalization)
  Sender: FDA-Public Use
  Company Number: IT-VERTEX PHARMACEUTICALS INC-2013-010855

PATIENT
  Age: 39 Year
  Sex: Male

DRUGS (3)
  1. INCIVO [Suspect]
     Indication: HEPATITIS C
     Dosage: 2250 MG, QD
     Route: 048
     Dates: start: 20130301, end: 20130601
  2. PEGASYS [Suspect]
     Indication: HEPATITIS C
     Dosage: DOSAGE FORM: SOLUTION FOR INJECTION
     Route: 058
     Dates: start: 20130301, end: 20130909
  3. COPEGUS [Suspect]
     Indication: HEPATITIS C
     Dosage: DOSAGE FORM: FILM COATED TABLET
     Route: 048
     Dates: start: 20130301, end: 20130909

REACTIONS (1)
  - Pneumonia [Recovered/Resolved]
